FAERS Safety Report 5747392-9 (Version None)
Quarter: 2008Q2

REPORT INFORMATION
  Report Type: 
  Country: None (occurrence: None)
  Receive Date: 20080523
  Receipt Date: 20080515
  Transmission Date: 20081010
  Serious: Yes (Other)
  Sender: FDA-Public Use
  Company Number: US-JNJFOC-20080100636

PATIENT
  Sex: Female
  Weight: 20.87 kg

DRUGS (2)
  1. IMODIUM A-D [Suspect]
     Route: 048
  2. IMODIUM A-D [Suspect]
     Indication: DIARRHOEA
     Dosage: 2 MG, FOLLOWED BY 1 MG, AS NEEDED
     Route: 048

REACTIONS (2)
  - HAEMATOCHEZIA [None]
  - WRONG DRUG ADMINISTERED [None]
